FAERS Safety Report 7233456-X (Version None)
Quarter: 2011Q1

REPORT INFORMATION
  Report Type: 
  Country: None (occurrence: None)
  Receive Date: 20110119
  Receipt Date: 20110113
  Transmission Date: 20110831
  Serious: Yes (Death, Life-Threatening, Other)
  Sender: FDA-Public Use
  Company Number: JP-PFIZER INC-2010146209

PATIENT
  Age: 81 Year
  Sex: Male
  Weight: 48 kg

DRUGS (12)
  1. LYRICA [Suspect]
     Indication: POST HERPETIC NEURALGIA
     Dosage: 75 MG, 2X/DAY
     Route: 048
     Dates: start: 20101101, end: 20101106
  2. AMARYL [Concomitant]
     Dosage: UNK
  3. BLOPRESS [Concomitant]
     Dosage: UNK, 1X/DAY
  4. GLYSENNID [Concomitant]
     Dosage: UNK, 1X/DAY
  5. LASIX [Concomitant]
     Dosage: UNK, 2X/DAY
  6. PENTAZOCINE LACTATE [Concomitant]
     Dosage: 25 MG, 3X/DAY
     Dates: start: 20101102, end: 20101103
  7. BASEN [Concomitant]
     Dosage: UNK, 3X/DAY
  8. SODIUM PICOSULFATE [Concomitant]
     Dosage: UNK, AS NEEDED
     Dates: start: 20101105
  9. LANTUS [Concomitant]
     Dosage: UNK
     Dates: start: 20101107
  10. EURODIN [Concomitant]
     Dosage: UNK, 1X/DAY
  11. VOLTAREN [Concomitant]
     Dosage: UNK, AS NEEDED
     Route: 054
     Dates: start: 20101101, end: 20101105
  12. MAGNESIUM OXIDE [Concomitant]
     Dosage: UNK, 3X/DAY

REACTIONS (6)
  - CIRCULATORY COLLAPSE [None]
  - SPEECH DISORDER [None]
  - ACUTE RESPIRATORY FAILURE [None]
  - SOMNOLENCE [None]
  - FEELING ABNORMAL [None]
  - MUSCULAR WEAKNESS [None]
